FAERS Safety Report 13393219 (Version 1)
Quarter: 2017Q1

REPORT INFORMATION
  Report Type: Spontaneous
  Country: US (occurrence: US)
  Receive Date: 20170331
  Receipt Date: 20170331
  Transmission Date: 20170429
  Serious: No
  Sender: FDA-Public Use
  Company Number: US-SEPTODONT-201603329

PATIENT
  Age: 56 Year
  Sex: Female
  Weight: 66.22 kg

DRUGS (5)
  1. BENZOCAINE. [Concomitant]
     Active Substance: BENZOCAINE
     Route: 061
  2. LIDOCAINE HYDROCHLORIDE 2% WITH EPINEPHRINE 1:100,000 INJECTION [Suspect]
     Active Substance: EPINEPHRINE\LIDOCAINE HYDROCHLORIDE
     Indication: LOCAL ANAESTHESIA
     Dosage: TOTAL OF 2.5 CARTRIDGES ADMINISTERED OVER 8 MINUTES
     Route: 004
  3. LIDOCAINE HYDROCHLORIDE 2% WITH EPINEPHRINE 1:100,000 INJECTION [Suspect]
     Active Substance: EPINEPHRINE\LIDOCAINE HYDROCHLORIDE
     Indication: LOCAL ANAESTHESIA
     Dosage: TOTAL OF 2.5 CARTRIDGES ADMINISTERED OVER 8 MINUTES
     Route: 004
  4. LIDOCAINE HYDROCHLORIDE 2% WITH EPINEPHRINE 1:100,000 INJECTION [Suspect]
     Active Substance: EPINEPHRINE\LIDOCAINE HYDROCHLORIDE
     Indication: LOCAL ANAESTHESIA
     Dosage: TOTAL OF 2.5 CARTRIDGES ADMINISTERED OVER 8 MINUTES
     Route: 004
  5. VALIUM 10 MG TABLET [Concomitant]
     Dosage: ADMINISTERED 1 HOUR BEFORE APPOINTMENT

REACTIONS (2)
  - Palpitations [Recovered/Resolved]
  - Tremor [Recovered/Resolved]

NARRATIVE: CASE EVENT DATE: 20160212
